FAERS Safety Report 16420170 (Version 3)
Quarter: 2019Q4

REPORT INFORMATION
  Report Type: Spontaneous
  Country: GR (occurrence: GR)
  Receive Date: 20190612
  Receipt Date: 20191122
  Transmission Date: 20200122
  Serious: Yes (Other)
  Sender: FDA-Public Use
  Company Number: GR-PFIZER INC-2019239329

PATIENT
  Age: 38 Year
  Sex: Female

DRUGS (10)
  1. VINCRISTINE SULFATE. [Suspect]
     Active Substance: VINCRISTINE SULFATE
     Indication: EWING^S SARCOMA
     Dosage: 1.5 MG/M2, CYCLIC (DAY 1, ADJUVANT CHEMOTHERAPY, 6 CYCLES)
  2. CIPROFLOXACIN. [Concomitant]
     Active Substance: CIPROFLOXACIN
     Indication: PROPHYLACTIC CHEMOTHERAPY
     Dosage: 250 MG, 2X/DAY (DAY 7-14)
  3. DOXORUBICIN HCL [Suspect]
     Active Substance: DOXORUBICIN HYDROCHLORIDE
     Indication: EWING^S SARCOMA
     Dosage: 20 MG/M2, CYCLIC (DAY 1-3, ADJUVANT CHEMOTHERAPY, 6 CYCLES)
  4. IFOSFAMIDE. [Suspect]
     Active Substance: IFOSFAMIDE
     Indication: EWING^S SARCOMA
     Dosage: 3 GRM2, DAY 1-3, CYCLIC (ADJUVANT CHEMOTHERAPY,DAY 1-3, CYCLIC (3 GM/M2 AS REPORTED, 6 CYCLES)
  5. ETOPOSIDE. [Suspect]
     Active Substance: ETOPOSIDE
     Indication: EWING^S SARCOMA
     Dosage: 150 MG/M2, (DAY 1-3, ADJUVANT CHEMOTHERAPY, 6 CYCLES)
  6. UROMITEXAN [Concomitant]
     Active Substance: MESNA
     Dosage: DAY 1-3 (INTRAVENOUS 20% OF IFOSFAMIDE DOSE, PER OS 40% OF IFOSFAMIDE DOSE 2 AND 8 H AFTER INFUSION
     Route: 048
  7. GRANULOCYTE COLONY STIMULATING FACTOR [Concomitant]
     Active Substance: GRANULOCYTE COLONY-STIMULATING FACTOR NOS
     Dosage: UNK (48MU DAY 7-14)
  8. FLUCONAZOLE. [Concomitant]
     Active Substance: FLUCONAZOLE
     Indication: PROPHYLACTIC CHEMOTHERAPY
     Dosage: 50 MG, 1X/DAY (DAY 7-14)
  9. UROMITEXAN [Concomitant]
     Active Substance: MESNA
     Dosage: DAY 1-3 (INTRAVENOUS 20% OF IFOSFAMIDE DOSE, PER OS 40% OF IFOSFAMIDE DOSE 2 AND 8 H AFTER INFUSION
     Route: 042
  10. COTRIMOXAZOLE [Concomitant]
     Active Substance: SULFAMETHOXAZOLE\TRIMETHOPRIM
     Indication: PROPHYLACTIC CHEMOTHERAPY
     Dosage: 480 MG DAY 1-21

REACTIONS (3)
  - Nausea [Unknown]
  - Anaemia [Unknown]
  - Stomatitis [Recovered/Resolved]
